FAERS Safety Report 23238463 (Version 2)
Quarter: 2023Q4

REPORT INFORMATION
  Report Type: Report from Study
  Country: US (occurrence: US)
  Receive Date: 20231129
  Receipt Date: 20231208
  Transmission Date: 20240110
  Serious: Yes (Hospitalization)
  Sender: FDA-Public Use
  Company Number: US-AMGEN-USASP2023211830

PATIENT
  Age: 69 Year
  Sex: Male

DRUGS (2)
  1. REPATHA [Suspect]
     Active Substance: EVOLOCUMAB
     Indication: Product used for unknown indication
     Dosage: 140 MILLIGRAM
     Route: 065
  2. REPATHA [Suspect]
     Active Substance: EVOLOCUMAB
     Dosage: 140 MILLIGRAM
     Route: 065

REACTIONS (12)
  - Gastrointestinal infection [Unknown]
  - Device difficult to use [Unknown]
  - Asthenia [Unknown]
  - Drug dose omission by device [Unknown]
  - Accidental exposure to product [Unknown]
  - Arthritis [Unknown]
  - Crying [Unknown]
  - Gait disturbance [Unknown]
  - Insomnia [Unknown]
  - Bone disorder [Unknown]
  - Spinal disorder [Unknown]
  - Underweight [Unknown]

NARRATIVE: CASE EVENT DATE: 20231124
